FAERS Safety Report 21730517 (Version 2)
Quarter: 2023Q1

REPORT INFORMATION
  Report Type: Report from Study
  Country: CH (occurrence: CH)
  Receive Date: 20221215
  Receipt Date: 20230211
  Transmission Date: 20230417
  Serious: Yes (Hospitalization)
  Sender: FDA-Public Use
  Company Number: CH-ABBVIE-4236658

PATIENT
  Age: 79 Year
  Sex: Male

DRUGS (3)
  1. CARBIDOPA\LEVODOPA [Suspect]
     Active Substance: CARBIDOPA\LEVODOPA
     Indication: Parkinson^s disease
     Dosage: MD 12.0ML, CRD 4.5ML/H, CRN 0ML/H, ED 3.0 ML?FREQUENCY TEXT 16H THERAPY
     Route: 050
     Dates: start: 20210331, end: 20210401
  2. CARBIDOPA\LEVODOPA [Suspect]
     Active Substance: CARBIDOPA\LEVODOPA
     Dosage: MD 12.0ML, CRD 4.5ML/H, CRN 0ML/H, ED 3.0 ML?FREQUENCY TEXT 16H THERAPY
     Route: 050
     Dates: start: 20210823
  3. CARBIDOPA\LEVODOPA [Suspect]
     Active Substance: CARBIDOPA\LEVODOPA
     Route: 050
     Dates: start: 20171017

REACTIONS (6)
  - Cerebral disorder [Recovering/Resolving]
  - Hypotension [Recovering/Resolving]
  - Hospitalisation [Not Recovered/Not Resolved]
  - Cerebrovascular accident [Recovering/Resolving]
  - On and off phenomenon [Not Recovered/Not Resolved]
  - Device issue [Not Recovered/Not Resolved]

NARRATIVE: CASE EVENT DATE: 20221212
